FAERS Safety Report 4411803-1 (Version None)
Quarter: 2004Q3

REPORT INFORMATION
  Report Type: 
  Country: None (occurrence: None)
  Receive Date: 20040726
  Receipt Date: 20040707
  Transmission Date: 20050211
  Serious: Yes (Other)
  Sender: FDA-Public Use
  Company Number: 200412196GDS

PATIENT
  Age: 72 Year
  Sex: Male

DRUGS (4)
  1. MOXIFLOXACIN HCL [Suspect]
     Indication: CHRONIC OBSTRUCTIVE AIRWAYS DISEASE EXACERBATED
     Dosage: 400 MG, TOTAL DAILY, ORAL
     Route: 048
     Dates: start: 20040427, end: 20040501
  2. OMEPRAZOLE [Concomitant]
  3. AMBOXOL [Concomitant]
  4. DIPYRONE TAB [Concomitant]

REACTIONS (5)
  - DERMATITIS BULLOUS [None]
  - ERYTHEMA MULTIFORME [None]
  - EYE OPERATION [None]
  - LEUKOCYTOCLASTIC VASCULITIS [None]
  - URTICARIA [None]
